FAERS Safety Report 6480807-X (Version None)
Quarter: 2009Q4

REPORT INFORMATION
  Report Type: 
  Country: None (occurrence: None)
  Receive Date: 20091208
  Receipt Date: 20091110
  Transmission Date: 20100525
  Serious: Yes (Other)
  Sender: FDA-Public Use
  Company Number: US-SANOFI-AVENTIS-2009SA002738

PATIENT
  Sex: Male

DRUGS (6)
  1. GLYBURIDE [Suspect]
     Indication: TYPE 2 DIABETES MELLITUS
     Route: 065
  2. METFORMIN HCL [Suspect]
  3. PLAVIX [Concomitant]
     Route: 065
  4. LISINOPRIL [Concomitant]
  5. ATENOLOL [Concomitant]
  6. ISOSORBIDE [Concomitant]

REACTIONS (8)
  - ASTHENIA [None]
  - BLOOD GLUCOSE DECREASED [None]
  - BLOOD GLUCOSE INCREASED [None]
  - EPISTAXIS [None]
  - EYE HAEMORRHAGE [None]
  - HYPERHIDROSIS [None]
  - TREMOR [None]
  - VISUAL IMPAIRMENT [None]
